FAERS Safety Report 15524325 (Version 3)
Quarter: 2018Q4

REPORT INFORMATION
  Report Type: Spontaneous
  Country: JP (occurrence: JP)
  Receive Date: 20181019
  Receipt Date: 20181113
  Transmission Date: 20190205
  Serious: Yes (Death, Other)
  Sender: FDA-Public Use
  Company Number: JP-ASTRAZENECA-2018SF36232

PATIENT
  Age: 75 Year
  Sex: Female

DRUGS (1)
  1. FASENRA [Suspect]
     Active Substance: BENRALIZUMAB
     Indication: ASTHMA
     Route: 058

REACTIONS (4)
  - Obesity [Unknown]
  - Terminal state [Unknown]
  - Pneumonia aspiration [Fatal]
  - Bacteraemia [Recovered/Resolved]
